FAERS Safety Report 24654572 (Version 1)
Quarter: 2024Q4

REPORT INFORMATION
  Report Type: Spontaneous
  Country: DE (occurrence: DE)
  Receive Date: 20241122
  Receipt Date: 20241122
  Transmission Date: 20250115
  Serious: Yes (Other)
  Sender: AMGEN
  Company Number: DE-AMGEN-DEUSP2024230208

PATIENT

DRUGS (1)
  1. PREDNISONE [Suspect]
     Active Substance: PREDNISONE
     Indication: Nephrotic syndrome
     Dosage: UNK
     Route: 065

REACTIONS (5)
  - Nephrotic syndrome [Unknown]
  - Cushingoid [Unknown]
  - Blood pressure decreased [Unknown]
  - Body mass index decreased [Unknown]
  - Mental disorder [Unknown]
